FAERS Safety Report 4455884-8 (Version None)
Quarter: 2004Q3

REPORT INFORMATION
  Report Type: 
  Country: None (occurrence: None)
  Receive Date: 20040922
  Receipt Date: 20040915
  Transmission Date: 20050211
  Serious: Yes (Hospitalization)
  Sender: FDA-Public Use
  Company Number: GB-MERCK-0409GBR00162

PATIENT
  Age: 78 Year
  Sex: Female

DRUGS (6)
  1. BENDROFLUMETHIAZIDE [Concomitant]
     Route: 048
  2. LACIDIPINE [Concomitant]
     Indication: BLOOD PRESSURE INCREASED
     Route: 048
  3. LANSOPRAZOLE [Concomitant]
     Indication: GASTROOESOPHAGEAL REFLUX DISEASE
     Route: 048
  4. LISINOPRIL [Concomitant]
     Indication: BLOOD PRESSURE INCREASED
     Route: 048
  5. VIOXX [Suspect]
     Indication: OSTEOARTHRITIS
     Route: 048
     Dates: end: 20040831
  6. TRAMADOL HYDROCHLORIDE [Concomitant]
     Route: 048
     Dates: end: 20040831

REACTIONS (2)
  - CHEST PAIN [None]
  - GASTRITIS [None]
